FAERS Safety Report 8343581-8 (Version None)
Quarter: 2012Q2

REPORT INFORMATION
  Report Type: 
  Country: None (occurrence: None)
  Receive Date: 20120508
  Receipt Date: 20100603
  Transmission Date: 20120825
  Serious: No
  Sender: FDA-Public Use
  Company Number: US-TEVA-2010003052

PATIENT
  Age: 67 Year
  Sex: Male

DRUGS (1)
  1. TREANDA [Suspect]
     Route: 041
     Dates: start: 20100303, end: 20100304

REACTIONS (2)
  - PAIN IN EXTREMITY [None]
  - VEIN DISORDER [None]
